FAERS Safety Report 23233400 (Version 1)
Quarter: 2023Q4

REPORT INFORMATION
  Report Type: Report from Study
  Country: CA (occurrence: CA)
  Receive Date: 20231128
  Receipt Date: 20231128
  Transmission Date: 20240109
  Serious: Yes (Other)
  Sender: FDA-Public Use
  Company Number: CA-UCBSA-2022058002

PATIENT
  Sex: Female

DRUGS (3)
  1. CERTOLIZUMAB PEGOL [Suspect]
     Active Substance: CERTOLIZUMAB PEGOL
     Indication: Psoriatic arthropathy
     Dosage: 400 MILLIGRAM, EV 2 WEEKS(QOW)
     Route: 058
     Dates: start: 20220901
  2. CERTOLIZUMAB PEGOL [Suspect]
     Active Substance: CERTOLIZUMAB PEGOL
     Dosage: 200 MILLIGRAM, EV 2 WEEKS(QOW)
     Route: 058
  3. FLUOROMETHOLONE [Concomitant]
     Active Substance: FLUOROMETHOLONE
     Indication: Eye swelling

REACTIONS (9)
  - Psoriatic arthropathy [Not Recovered/Not Resolved]
  - SARS-CoV-2 test positive [Not Recovered/Not Resolved]
  - Headache [Not Recovered/Not Resolved]
  - Chills [Not Recovered/Not Resolved]
  - Pain [Not Recovered/Not Resolved]
  - Rhinorrhoea [Not Recovered/Not Resolved]
  - Rash [Not Recovered/Not Resolved]
  - Eye swelling [Not Recovered/Not Resolved]
  - Acne [Not Recovered/Not Resolved]
